FAERS Safety Report 18825489 (Version 1)
Quarter: 2021Q1

REPORT INFORMATION
  Report Type: Spontaneous
  Country: US (occurrence: US)
  Receive Date: 20210201
  Receipt Date: 20210201
  Transmission Date: 20210419
  Serious: No
  Sender: FDA-Public Use
  Company Number: US-ABBVIE-20K-163-3345723-00

PATIENT
  Age: 66 Year
  Sex: Male

DRUGS (1)
  1. HUMIRA [Suspect]
     Active Substance: ADALIMUMAB
     Indication: COLITIS ULCERATIVE
     Route: 058
     Dates: start: 20191202

REACTIONS (5)
  - Pain [Unknown]
  - Musculoskeletal disorder [Unknown]
  - Infection [Unknown]
  - Peripheral swelling [Unknown]
  - Vascular pain [Unknown]

NARRATIVE: CASE EVENT DATE: 202002
